FAERS Safety Report 13071641 (Version 1)
Quarter: 2016Q4

REPORT INFORMATION
  Report Type: Spontaneous
  Country: US (occurrence: US)
  Receive Date: 20161228
  Receipt Date: 20161228
  Transmission Date: 20170207
  Serious: Yes (Death, Hospitalization)
  Sender: FDA-Public Use
  Company Number: None

PATIENT
  Age: 82 Year
  Sex: Male

DRUGS (1)
  1. ESBRIET [Suspect]
     Active Substance: PIRFENIDONE
     Indication: IDIOPATHIC PULMONARY FIBROSIS
     Route: 048
     Dates: start: 20160810

REACTIONS (6)
  - Condition aggravated [None]
  - Dyspnoea [None]
  - Pulmonary oedema [None]
  - Respiratory failure [None]
  - Pneumonia fungal [None]
  - Renal failure [None]

NARRATIVE: CASE EVENT DATE: 20161213
